FAERS Safety Report 19124687 (Version 2)
Quarter: 2021Q2

REPORT INFORMATION
  Report Type: Report from Study
  Country: US (occurrence: US)
  Receive Date: 20210413
  Receipt Date: 20210519
  Transmission Date: 20210717
  Serious: Yes (Other)
  Sender: FDA-Public Use
  Company Number: US-KYOWAKIRIN-2021BKK005599

PATIENT

DRUGS (1)
  1. POTELIGEO [Suspect]
     Active Substance: MOGAMULIZUMAB-KPKC
     Indication: PRODUCT USED FOR UNKNOWN INDICATION
     Dosage: UNK
     Route: 065
     Dates: end: 20210414

REACTIONS (4)
  - Inappropriate schedule of product administration [Unknown]
  - Photopheresis [Unknown]
  - Skin neoplasm excision [Unknown]
  - Radiotherapy [Unknown]

NARRATIVE: CASE EVENT DATE: 2021
